FAERS Safety Report 5603259-8 (Version None)
Quarter: 2008Q1

REPORT INFORMATION
  Report Type: 
  Country: None (occurrence: None)
  Receive Date: 20080125
  Receipt Date: 20080117
  Transmission Date: 20080703
  Serious: Yes (Hospitalization)
  Sender: FDA-Public Use
  Company Number: FR-PFIZER INC-2008005945

PATIENT
  Age: 59 Year
  Sex: Male

DRUGS (4)
  1. TAHOR [Suspect]
     Route: 048
  2. AMLOR [Suspect]
     Route: 048
  3. INSULIN [Concomitant]
  4. ALPHA-ADRENOCEPTOR BLOCKING AGENTS [Concomitant]

REACTIONS (1)
  - RHABDOMYOLYSIS [None]
